FAERS Safety Report 7038679-0 (Version None)
Quarter: 2010Q4

REPORT INFORMATION
  Report Type: 
  Country: None (occurrence: None)
  Receive Date: 20101011
  Receipt Date: 20100929
  Transmission Date: 20110411
  Serious: Yes (Other)
  Sender: FDA-Public Use
  Company Number: US-PFIZER INC-2010124061

PATIENT
  Sex: Female
  Weight: 58 kg

DRUGS (8)
  1. NEURONTIN [Suspect]
     Indication: NEURALGIA
     Dosage: 250 MG, 3X/DAY
     Route: 048
     Dates: start: 20100801, end: 20100929
  2. EPIVIR [Concomitant]
     Indication: ANTIVIRAL PROPHYLAXIS
     Dosage: 100 MG, 1X/DAY
     Route: 048
  3. PREVACID [Concomitant]
     Indication: GASTROOESOPHAGEAL REFLUX DISEASE
     Dosage: 30 MG, 1X/DAY
     Route: 048
  4. METOPROLOL [Concomitant]
     Indication: BLOOD PRESSURE ABNORMAL
     Dosage: 75 MG, 2X/DAY
  5. PREDNISONE [Concomitant]
     Indication: PROPHYLAXIS AGAINST TRANSPLANT REJECTION
     Dosage: 5 MG, 1X/DAY
  6. PROGRAF [Concomitant]
     Indication: PROPHYLAXIS AGAINST TRANSPLANT REJECTION
     Dosage: 3 MG, 2X/DAY
  7. VALCYTE [Concomitant]
     Indication: ANTIVIRAL PROPHYLAXIS
     Dosage: 900 MG, 1X/DAY
  8. VANCOMYCIN HYDROCHLORIDE [Concomitant]
     Indication: ABDOMINAL INFECTION
     Dosage: 500 MG, 2X/DAY

REACTIONS (1)
  - LEUKOPENIA [None]
